FAERS Safety Report 18279562 (Version 1)
Quarter: 2020Q3

REPORT INFORMATION
  Report Type: Spontaneous
  Country: US (occurrence: US)
  Receive Date: 20200917
  Receipt Date: 20200917
  Transmission Date: 20201103
  Serious: No
  Sender: FDA-Public Use
  Company Number: US-ADAMAS PHARMA, LLC-2020ADA01438

PATIENT
  Sex: Female

DRUGS (16)
  1. SERTRALINE [Concomitant]
     Active Substance: SERTRALINE HYDROCHLORIDE
  2. SULFASALAZINE. [Concomitant]
     Active Substance: SULFASALAZINE
  3. VITAMIN D3 [Concomitant]
     Active Substance: CHOLECALCIFEROL
  4. CARBIDOPA/LEVODOPA [Concomitant]
     Active Substance: CARBIDOPA\LEVODOPA
  5. GOCOVRI [Suspect]
     Active Substance: AMANTADINE
     Dosage: 68.5 MG, 1X/DAY AT BEDTIME
     Route: 048
     Dates: start: 20200416, end: 2020
  6. OMEPRAZOLE. [Concomitant]
     Active Substance: OMEPRAZOLE
  7. LORAZEPAM. [Concomitant]
     Active Substance: LORAZEPAM
  8. POTASSIUM [Concomitant]
     Active Substance: POTASSIUM
  9. ROPINIROLE. [Concomitant]
     Active Substance: ROPINIROLE
  10. TYLENOL [Concomitant]
     Active Substance: ACETAMINOPHEN
  11. MULTIVITAMIN [Concomitant]
     Active Substance: VITAMINS
  12. VITAMIN B12/FOLIC ACID [Concomitant]
  13. GOCOVRI [Suspect]
     Active Substance: AMANTADINE
     Dosage: 137 MG, 1X/DAY
     Dates: start: 2020
  14. GLYCOPYRROLATE. [Concomitant]
     Active Substance: GLYCOPYRROLATE
  15. VITAMIN C IMMUNE WAFERS [Concomitant]
  16. VITAMINS NOS [Concomitant]
     Active Substance: VITAMINS

REACTIONS (1)
  - Therapeutic product effect decreased [Unknown]

NARRATIVE: CASE EVENT DATE: 2020
